FAERS Safety Report 9741052 (Version 1)
Quarter: 2013Q4

REPORT INFORMATION
  Report Type: Spontaneous
  Country: CH (occurrence: CH)
  Receive Date: 20131209
  Receipt Date: 20131209
  Transmission Date: 20140711
  Serious: Yes (Life-Threatening, Hospitalization)
  Sender: FDA-Public Use
  Company Number: CH-ASTRAZENECA-2013SE89499

PATIENT
  Age: 64 Year
  Sex: Female
  Weight: 65.5 kg

DRUGS (10)
  1. SEROQUEL [Suspect]
     Route: 048
  2. SEROQUEL [Suspect]
     Route: 048
  3. KETALGIN [Suspect]
     Route: 048
  4. TRANXILIUM [Suspect]
     Route: 048
  5. ASPIRIN CARDIO [Concomitant]
     Route: 048
  6. AMLODIPIN [Concomitant]
     Route: 048
  7. CO APROVEL [Concomitant]
     Route: 048
  8. SORTIS [Concomitant]
     Route: 048
  9. CYMBALTA [Concomitant]
     Route: 048
  10. LYRICA [Concomitant]
     Route: 048

REACTIONS (5)
  - Drug abuse [Recovered/Resolved]
  - Pneumonia aspiration [Recovered/Resolved]
  - Sopor [Unknown]
  - Confusional state [Recovered/Resolved]
  - Dyspnoea [Recovered/Resolved]
